FAERS Safety Report 11297735 (Version 1)
Quarter: 2015Q3

REPORT INFORMATION
  Report Type: Spontaneous
  Country: US (occurrence: US)
  Receive Date: 20150722
  Receipt Date: 20150722
  Transmission Date: 20151125
  Serious: No
  Sender: FDA-Public Use
  Company Number: US-ELI_LILLY_AND_COMPANY-US200905005373

PATIENT
  Age: 48 Year
  Sex: Female

DRUGS (12)
  1. SINGULAIR [Concomitant]
     Active Substance: MONTELUKAST SODIUM
  2. HUMATROPE [Suspect]
     Active Substance: SOMATROPIN
     Dosage: 0.4 MG, DAILY (1/D)
     Dates: start: 2009, end: 2009
  3. ESTRADIOL. [Concomitant]
     Active Substance: ESTRADIOL
     Dates: end: 200904
  4. ESTRADIOL. [Concomitant]
     Active Substance: ESTRADIOL
     Dates: start: 2009
  5. PRISTIQ EXTENDED RELEASE [Concomitant]
     Active Substance: DESVENLAFAXINE SUCCINATE
     Dates: end: 20090708
  6. HUMATROPE [Suspect]
     Active Substance: SOMATROPIN
     Dosage: 0.4 MG, DAILY (1/D)
     Dates: end: 20090720
  7. HUMATROPE [Suspect]
     Active Substance: SOMATROPIN
     Dosage: 0.3 MG, UNK
     Dates: start: 2009, end: 2009
  8. HUMATROPE [Suspect]
     Active Substance: SOMATROPIN
     Indication: DEPRESSION
     Dosage: 0.2 MG, UNK
     Dates: start: 200904, end: 2009
  9. HUMATROPE [Suspect]
     Active Substance: SOMATROPIN
     Dosage: 0.6 MG, DAILY (1/D)
     Dates: start: 2009
  10. PROZAC [Concomitant]
     Active Substance: FLUOXETINE HYDROCHLORIDE
  11. PRECOSE [Concomitant]
     Active Substance: ACARBOSE
  12. PROMETRIUM [Concomitant]
     Active Substance: PROGESTERONE

REACTIONS (8)
  - Drug ineffective [Not Recovered/Not Resolved]
  - Off label use [Not Recovered/Not Resolved]
  - Muscular weakness [Not Recovered/Not Resolved]
  - Depression [Not Recovered/Not Resolved]
  - Tremor [Not Recovered/Not Resolved]
  - Muscle spasms [Recovered/Resolved]
  - Incorrect dose administered [Unknown]
  - Drug dose omission [Recovered/Resolved]

NARRATIVE: CASE EVENT DATE: 200904
